FAERS Safety Report 19876739 (Version 1)
Quarter: 2021Q3

REPORT INFORMATION
  Report Type: Spontaneous
  Country: CZ (occurrence: CZ)
  Receive Date: 20210923
  Receipt Date: 20210923
  Transmission Date: 20211014
  Serious: Yes (Death, Life-Threatening, Hospitalization, Other)
  Sender: FDA-Public Use
  Company Number: CZ-MYLANLABS-2021M1064664

PATIENT
  Age: 71 Year
  Sex: Female

DRUGS (14)
  1. HULIO [Suspect]
     Active Substance: ADALIMUMAB-FKJP
     Indication: RHEUMATOID ARTHRITIS
     Dosage: 40 MILLIGRAM (EVERY TWO WEEKS)
     Route: 058
     Dates: start: 20200512, end: 20210127
  2. DETRALEX [Concomitant]
     Active Substance: DIOSMIN\HESPERIDIN
     Dosage: 1?0?1
  3. CALCICHEW [Concomitant]
     Active Substance: CALCIUM CARBONATE
     Dosage: 1?0?0 EVERY OTHER DAY
  4. ACIDUM FOLICUM [Concomitant]
     Active Substance: FOLIC ACID
     Dosage: UNK
     Route: 048
  5. AIRFLUSAN FORSPIRO [Concomitant]
     Active Substance: FLUTICASONE PROPIONATE\SALMETEROL XINAFOATE
     Dosage: 2?0?2
  6. STADAMET [Concomitant]
     Active Substance: METFORMIN HYDROCHLORIDE
     Dosage: 1?0?1
     Route: 048
  7. PREDNISON [Concomitant]
     Active Substance: PREDNISONE
     Dosage: UNK
  8. OMEPRAZOL                          /00661201/ [Concomitant]
     Active Substance: OMEPRAZOLE
     Dosage: 1?0?0
  9. METOJECT PEN [Concomitant]
     Active Substance: METHOTREXATE
     Indication: RHEUMATOID ARTHRITIS
     Dosage: ? 14 DAYS TO HER LEG
     Route: 030
  10. MEDROL [Concomitant]
     Active Substance: METHYLPREDNISOLONE
     Dosage: 1?0?0
  11. LOZAP                              /01121602/ [Concomitant]
     Active Substance: LOSARTAN POTASSIUM
     Dosage: 1?0?1/2
  12. ATORIS [Concomitant]
     Active Substance: ATORVASTATIN CALCIUM
     Dosage: 0?0?1
  13. NITROMINT [Concomitant]
     Active Substance: NITROGLYCERIN
     Dosage: 1?0?0
  14. BIOFENAC                           /00372302/ [Concomitant]
     Dosage: AS NEEDED

REACTIONS (2)
  - COVID-19 pneumonia [Fatal]
  - Acute respiratory failure [Fatal]
